FAERS Safety Report 18590697 (Version 1)
Quarter: 2020Q4

REPORT INFORMATION
  Report Type: Spontaneous
  Country: US (occurrence: US)
  Receive Date: 20201208
  Receipt Date: 20201208
  Transmission Date: 20210114
  Serious: No
  Sender: FDA-Public Use
  Company Number: None

PATIENT
  Age: 56 Year
  Sex: Female
  Weight: 99.45 kg

DRUGS (7)
  1. CALCIUM 500 + D [Concomitant]
     Active Substance: CALCIUM\VITAMIN D
  2. CARVEDILOL. [Concomitant]
     Active Substance: CARVEDILOL
  3. DEXAMETHASONE. [Concomitant]
     Active Substance: DEXAMETHASONE
  4. ENALAPRIL MALEATE. [Concomitant]
     Active Substance: ENALAPRIL MALEATE
  5. HERCEPTIN [Concomitant]
     Active Substance: TRASTUZUMAB
  6. ZOLPIDEM TARTRATE. [Concomitant]
     Active Substance: ZOLPIDEM TARTRATE
  7. CAPECITABINE. [Suspect]
     Active Substance: CAPECITABINE
     Indication: BREAST CANCER
     Route: 048
     Dates: start: 20200902, end: 20201208

REACTIONS (1)
  - Disease progression [None]

NARRATIVE: CASE EVENT DATE: 20201208
